FAERS Safety Report 9721491 (Version 2)
Quarter: 2014Q4

REPORT INFORMATION
  Report Type: Spontaneous
  Country: JP (occurrence: JP)
  Receive Date: 20131130
  Receipt Date: 20141029
  Transmission Date: 20150529
  Serious: Yes (Other)
  Sender: FDA-Public Use
  Company Number: JP-MERCK-1311JPN011427

PATIENT
  Age: 45 Year
  Sex: Female

DRUGS (2)
  1. RIBAVIRIN. [Suspect]
     Active Substance: RIBAVIRIN
     Indication: CHRONIC HEPATITIS C
     Dosage: 600 MG, PER DAY FOR 48 WEEKS
     Route: 048
  2. PEGINTERFERON ALFA-2B [Suspect]
     Active Substance: PEGINTERFERON ALFA-2B
     Indication: CHRONIC HEPATITIS C
     Dosage: 80 MICROGRAM, PER WEEK FOR 48 WEEKS
     Route: 058

REACTIONS (3)
  - Sinus node dysfunction [Not Recovered/Not Resolved]
  - Hypothyroidism [Recovered/Resolved]
  - Cardiac pacemaker insertion [Unknown]
